FAERS Safety Report 23099704 (Version 2)
Quarter: 2025Q4

REPORT INFORMATION
  Report Type: Spontaneous
  Country: JP (occurrence: JP)
  Receive Date: 20231024
  Receipt Date: 20251103
  Transmission Date: 20260118
  Serious: Yes (Death, Other)
  Sender: AMGEN
  Company Number: JP-DSJP-DSJ-2023-142567

PATIENT
  Age: 75 Year
  Sex: Male

DRUGS (1)
  1. DENOSUMAB [Suspect]
     Active Substance: DENOSUMAB
     Indication: Lung adenocarcinoma
     Dosage: UNK
     Route: 065
     Dates: start: 20200806, end: 20210506

REACTIONS (1)
  - Osteonecrosis of jaw [Fatal]

NARRATIVE: CASE EVENT DATE: 20210311
